FAERS Safety Report 14614683 (Version 1)
Quarter: 2018Q1

REPORT INFORMATION
  Report Type: Report from Study
  Country: FR (occurrence: FR)
  Receive Date: 20180308
  Receipt Date: 20180308
  Transmission Date: 20180509
  Serious: Yes (Hospitalization, Other)
  Sender: FDA-Public Use
  Company Number: FR-SHIRE-FR201807564

PATIENT

DRUGS (1)
  1. XAGRID [Suspect]
     Active Substance: ANAGRELIDE HYDROCHLORIDE
     Indication: PRODUCT USED FOR UNKNOWN INDICATION
     Dosage: 4 TABLETS, 1X/DAY:QD
     Route: 065
     Dates: start: 201504, end: 20180213

REACTIONS (3)
  - Chronic kidney disease [Unknown]
  - Hypoxia [Unknown]
  - Lung disorder [Unknown]

NARRATIVE: CASE EVENT DATE: 20180202
